FAERS Safety Report 13363032 (Version 1)
Quarter: 2017Q1

REPORT INFORMATION
  Report Type: Spontaneous
  Country: RU (occurrence: RU)
  Receive Date: 20170323
  Receipt Date: 20170323
  Transmission Date: 20170429
  Serious: Yes (Life-Threatening, Hospitalization)
  Sender: FDA-Public Use
  Company Number: RU-ASTRAZENECA-2017SE29722

PATIENT
  Age: 71 Year
  Sex: Male
  Weight: 60 kg

DRUGS (1)
  1. BRILINTA [Suspect]
     Active Substance: TICAGRELOR
     Route: 048
     Dates: start: 201607

REACTIONS (2)
  - Myocardial infarction [Unknown]
  - Dyspnoea [Unknown]

NARRATIVE: CASE EVENT DATE: 20160724
